FAERS Safety Report 5815110-1 (Version None)
Quarter: 2008Q3

REPORT INFORMATION
  Report Type: 
  Country: None (occurrence: None)
  Receive Date: 20080718
  Receipt Date: 20080707
  Transmission Date: 20090109
  Serious: Yes (Disabling)
  Sender: FDA-Public Use
  Company Number: US-MERCK-0807USA01033

PATIENT
  Age: 70 Year
  Sex: Female

DRUGS (10)
  1. FOSAMAX PLUS D [Suspect]
     Indication: OSTEOPOROSIS
     Route: 048
     Dates: start: 20070401
  2. IBUPROFEN [Concomitant]
     Route: 065
  3. GLUCOSAMINE SULFATE [Concomitant]
     Route: 065
  4. ADVAIR DISKUS 100/50 [Concomitant]
     Route: 065
  5. PROAIR HFA [Concomitant]
     Route: 065
  6. SYNTHROID [Concomitant]
     Route: 065
  7. SANCTURA [Concomitant]
     Route: 065
  8. SINGULAIR [Concomitant]
     Route: 065
  9. WAL-ITIN [Concomitant]
     Route: 065
  10. FOSAMAX [Suspect]
     Indication: OSTEOARTHRITIS
     Route: 048
     Dates: start: 19890101, end: 20070101

REACTIONS (2)
  - ANKLE FRACTURE [None]
  - FALL [None]
